FAERS Safety Report 10428635 (Version 3)
Quarter: 2014Q4

REPORT INFORMATION
  Report Type: Spontaneous
  Country: US (occurrence: US)
  Receive Date: 20140903
  Receipt Date: 20141006
  Transmission Date: 20150528
  Serious: Yes (Hospitalization)
  Sender: FDA-Public Use
  Company Number: US-ACTELION-A-NJ2014-104476

PATIENT
  Age: 55 Year
  Sex: Male
  Weight: 74.1 kg

DRUGS (12)
  1. LIPITOR [Concomitant]
     Active Substance: ATORVASTATIN CALCIUM
     Dosage: 20 MG, QD
  2. SILDENAFIL. [Concomitant]
     Active Substance: SILDENAFIL
  3. MAGNESIUM [Concomitant]
     Active Substance: MAGNESIUM
     Dosage: 400 MG, TID
  4. FERROUS SULFATE [Concomitant]
     Active Substance: FERROUS SULFATE\FERROUS SULFATE, DRIED
     Dosage: 325 UNK, TID
  5. EPLERENONE. [Concomitant]
     Active Substance: EPLERENONE
     Dosage: 25 MG, BID
     Route: 048
  6. PROTONIX [Concomitant]
     Active Substance: PANTOPRAZOLE SODIUM
     Dosage: 40 MG, QD
  7. REMODULIN [Concomitant]
     Active Substance: TREPROSTINIL
  8. TORSEMIDE. [Concomitant]
     Active Substance: TORSEMIDE
     Dosage: 80 MG, BID
  9. TRACLEER [Suspect]
     Active Substance: BOSENTAN\BOSENTAN MONOHYDRATE
     Indication: PULMONARY HYPERTENSION
     Dosage: 62.5 MG, BID
     Route: 048
     Dates: start: 2010
  10. COUMADIN [Concomitant]
     Active Substance: WARFARIN SODIUM
  11. KCL [Concomitant]
     Active Substance: POTASSIUM CHLORIDE
     Dosage: 80 MEQ, TID
  12. ADCIRCA [Concomitant]
     Active Substance: TADALAFIL

REACTIONS (10)
  - Atrial fibrillation [Not Recovered/Not Resolved]
  - Pulmonary hypertension [Unknown]
  - Oedema peripheral [Recovered/Resolved]
  - Haematocrit decreased [None]
  - Blood albumin decreased [None]
  - Haemoglobin decreased [None]
  - Right ventricular failure [Recovered/Resolved]
  - Disease progression [Unknown]
  - Treatment noncompliance [Unknown]
  - Blood magnesium decreased [None]

NARRATIVE: CASE EVENT DATE: 201408
